FAERS Safety Report 5256839-6 (Version None)
Quarter: 2007Q1

REPORT INFORMATION
  Report Type: 
  Country: None (occurrence: None)
  Receive Date: 20070306
  Receipt Date: 20070227
  Transmission Date: 20070707
  Serious: Yes (Hospitalization)
  Sender: FDA-Public Use
  Company Number: BR-SHR-BR-2007-007382

PATIENT
  Age: 28 Year
  Sex: Female

DRUGS (3)
  1. MIRENA [Suspect]
     Indication: CONTRACEPTION
     Dosage: 20 A?G/DAY, CONT
     Route: 015
     Dates: start: 20060815
  2. SIBUTRAMINE [Concomitant]
  3. ASCORBIC ACID [Concomitant]

REACTIONS (5)
  - ACNE [None]
  - COITAL BLEEDING [None]
  - KIDNEY INFECTION [None]
  - MENORRHAGIA [None]
  - WEIGHT INCREASED [None]
